FAERS Safety Report 8605782 (Version 5)
Quarter: 2013Q4

REPORT INFORMATION
  Report Type: Report from Study
  Country: JP (occurrence: JP)
  Receive Date: 20120608
  Receipt Date: 20131205
  Transmission Date: 20140711
  Serious: Yes (Hospitalization)
  Sender: FDA-Public Use
  Company Number: JP-VERTEX PHARMACEUTICALS INC.-AE-2012-008160

PATIENT
  Age: 65 Year
  Sex: Female

DRUGS (7)
  1. VX-950 (TELAPREVIR) [Suspect]
     Indication: CHRONIC HEPATITIS C
     Dosage: 2250 MG, QD
     Route: 048
     Dates: start: 20120522, end: 20120526
  2. PEGINTERFERON ALFA-2B [Concomitant]
     Dosage: 80 ?G, QW
     Route: 058
     Dates: start: 20120522, end: 20120522
  3. PEGINTERFERON ALFA-2B [Concomitant]
     Dosage: 40 ?G, QW
     Route: 058
     Dates: start: 20120529, end: 20120529
  4. PEGINTERFERON ALFA-2B [Concomitant]
     Dosage: 60 ?G, QW
     Route: 058
     Dates: start: 20120606, end: 20120606
  5. PEGINTERFERON ALFA-2B [Concomitant]
     Dosage: 70 ?G, QW
     Route: 058
     Dates: start: 20120613, end: 20120620
  6. PEGINTERFERON ALFA-2B [Concomitant]
     Dosage: 80 ?G, QW
     Route: 058
     Dates: start: 20120627
  7. RIBAVIRIN [Concomitant]
     Dosage: 600 MG, QD
     Route: 048
     Dates: start: 20120522

REACTIONS (3)
  - Dyspnoea [Recovered/Resolved]
  - Rash [Recovered/Resolved]
  - Erythema [Recovered/Resolved]
